FAERS Safety Report 4947716-6 (Version None)
Quarter: 2006Q1

REPORT INFORMATION
  Report Type: 
  Country: None (occurrence: None)
  Receive Date: 20060320
  Receipt Date: 20051228
  Transmission Date: 20060701
  Serious: Yes (Hospitalization, Other)
  Sender: FDA-Public Use
  Company Number: US-BRISTOL-MYERS SQUIBB COMPANY-13231840

PATIENT
  Age: 12 Year
  Sex: Female
  Weight: 65 kg

DRUGS (3)
  1. COUMADIN [Suspect]
     Indication: ANTICOAGULANT THERAPY
     Dosage: 1 MG MON, WED, FRI; 2 MG SUN, TUES, THURS, SAT
     Route: 048
     Dates: start: 20020101, end: 20051129
  2. COUMADIN [Suspect]
     Indication: PULMONARY HYPERTENSION
     Dosage: 1 MG MON, WED, FRI; 2 MG SUN, TUES, THURS, SAT
     Route: 048
     Dates: start: 20020101, end: 20051129
  3. AMLODIPINE [Concomitant]
     Route: 048
     Dates: start: 19990101

REACTIONS (4)
  - CONTUSION [None]
  - SKULL FRACTURE [None]
  - SUBDURAL HAEMATOMA [None]
  - SYNCOPE [None]
